FAERS Safety Report 4971436-5 (Version None)
Quarter: 2006Q2

REPORT INFORMATION
  Report Type: 
  Country: None (occurrence: None)
  Receive Date: 20060413
  Receipt Date: 20060405
  Transmission Date: 20061013
  Serious: No
  Sender: FDA-Public Use
  Company Number: IT-BOEHRINGER INGELHEIM PHARMACEUTICALS, INC.-2006-IT-00076IT

PATIENT
  Sex: Male
  Weight: 75 kg

DRUGS (1)
  1. VIRAMUNE [Suspect]
     Dates: start: 20050101

REACTIONS (4)
  - ABDOMINAL DISTENSION [None]
  - BLOOD CHOLESTEROL INCREASED [None]
  - BLOOD TRIGLYCERIDES INCREASED [None]
  - BODY FAT DISORDER [None]
